FAERS Safety Report 23638071 (Version 2)
Quarter: 2024Q2

REPORT INFORMATION
  Report Type: Spontaneous
  Country: US (occurrence: None)
  Receive Date: 20240315
  Receipt Date: 20240425
  Transmission Date: 20240716
  Serious: No
  Sender: FDA-Public Use
  Company Number: 2024A055282

PATIENT
  Sex: Female

DRUGS (1)
  1. SYMBICORT [Suspect]
     Active Substance: BUDESONIDE\FORMOTEROL FUMARATE DIHYDRATE
     Dosage: 160/4.5MCG, 120 INHALATIONS UNKNOWN
     Route: 055

REACTIONS (4)
  - Oropharyngeal discomfort [Unknown]
  - Multiple allergies [Unknown]
  - Paranasal sinus hypersecretion [Unknown]
  - Device delivery system issue [Unknown]
